FAERS Safety Report 8935251 (Version 1)
Quarter: 2012Q4

REPORT INFORMATION
  Report Type: 
  Country: ES (occurrence: ES)
  Receive Date: 20121129
  Receipt Date: 20121129
  Transmission Date: 20130627
  Serious: Yes (Hospitalization)
  Sender: FDA-Public Use
  Company Number: ES-B.I. PHARMACEUTICALS,INC./RIDGEFIELD-2012-ES-00450ES

PATIENT
  Age: 74 Year
  Sex: Female
  Weight: 60 kg

DRUGS (5)
  1. PRADAXA [Suspect]
  2. ACOVIL [Concomitant]
     Dosage: 2.5 NR
  3. BISOPROLOL [Concomitant]
     Dosage: 5 NR
  4. SEGURIL [Concomitant]
  5. ACTONEL [Concomitant]

REACTIONS (4)
  - Inguinal hernia strangulated [Unknown]
  - Gastrointestinal haemorrhage [Recovered/Resolved]
  - Haematemesis [Recovered/Resolved]
  - Vomiting [Unknown]
